FAERS Safety Report 23148172 (Version 2)
Quarter: 2023Q4

REPORT INFORMATION
  Report Type: Spontaneous
  Country: US (occurrence: US)
  Receive Date: 20231106
  Receipt Date: 20231219
  Transmission Date: 20240110
  Serious: Yes (Other)
  Sender: FDA-Public Use
  Company Number: US-BRISTOL-MYERS SQUIBB COMPANY-2023-155616

PATIENT
  Age: 58 Year
  Sex: Female

DRUGS (1)
  1. ZEPOSIA [Suspect]
     Active Substance: OZANIMOD HYDROCHLORIDE
     Indication: Multiple sclerosis
     Route: 048
     Dates: start: 20221221

REACTIONS (5)
  - Gastrointestinal disorder [Unknown]
  - Vitamin D decreased [Unknown]
  - Vitamin B12 decreased [Unknown]
  - Ovarian granulosa cell tumour [Unknown]
  - Hernia [Unknown]

NARRATIVE: CASE EVENT DATE: 20230829
